FAERS Safety Report 5370848-8 (Version None)
Quarter: 2007Q2

REPORT INFORMATION
  Report Type: 
  Country: None (occurrence: None)
  Receive Date: 20070626
  Receipt Date: 20070605
  Transmission Date: 20071010
  Serious: Yes (Death, Hospitalization, Other)
  Sender: FDA-Public Use
  Company Number: AT-ABBOTT-07P-009-0370596-00

PATIENT
  Sex: Male
  Weight: 86 kg

DRUGS (10)
  1. HUMIRA [Suspect]
     Indication: POLYCHONDRITIS
     Route: 058
     Dates: start: 20070510, end: 20070515
  2. EBETREXAT [Concomitant]
     Indication: POLYCHONDRITIS
     Route: 048
     Dates: start: 20070402, end: 20070515
  3. ACETYLSALICYLIC ACID SRT [Concomitant]
     Indication: CORONARY ARTERY DISEASE
     Dates: start: 19960101, end: 20070515
  4. RISEDRONATE SODIUM [Concomitant]
     Indication: OSTEOPOROSIS
     Dates: start: 20060101, end: 20070515
  5. LEKOVIT CA [Concomitant]
     Indication: OSTEOPOROSIS
     Dates: start: 20060101, end: 20070515
  6. ESOMEPRAZOLE MAGNESIUM [Concomitant]
     Indication: PROPHYLAXIS AGAINST GASTROINTESTINAL ULCER
     Dates: start: 20040101, end: 20070515
  7. GLIMEPIRIDE [Concomitant]
     Indication: DIABETES MELLITUS NON-INSULIN-DEPENDENT
     Dates: start: 20050101, end: 20070515
  8. METOPROLOL SUCCINATE [Concomitant]
     Indication: HYPERTENSION
     Dates: start: 19960101, end: 20070515
  9. LISINOPRIL [Concomitant]
     Indication: HYPERTENSION
     Dates: start: 19960101, end: 20070515
  10. PREDNISOLONE [Concomitant]
     Indication: POLYCHONDRITIS
     Dates: start: 20040101, end: 20070515

REACTIONS (7)
  - GENERAL PHYSICAL HEALTH DETERIORATION [None]
  - HAEMODYNAMIC INSTABILITY [None]
  - MULTI-ORGAN FAILURE [None]
  - PNEUMONIA [None]
  - RENAL FAILURE ACUTE [None]
  - SEPSIS [None]
  - SYNCOPE [None]
